FAERS Safety Report 18731891 (Version 1)
Quarter: 2021Q1

REPORT INFORMATION
  Report Type: Spontaneous
  Country: US (occurrence: US)
  Receive Date: 20210112
  Receipt Date: 20210112
  Transmission Date: 20210419
  Serious: No
  Sender: FDA-Public Use
  Company Number: US-PRINSTON PHARMACEUTICAL INC.-2020PRN00104

PATIENT
  Age: 58 Year
  Sex: Male
  Weight: 110.2 kg

DRUGS (6)
  1. OMEPRAZOLE (ZYDUS) [Concomitant]
     Dosage: UNK
  2. FENOFIBRATE (IMPAX) [Concomitant]
  3. NORTRIPTYLINE (MAIN) [Concomitant]
     Dosage: UNK
  4. RISPERIDONE. [Suspect]
     Active Substance: RISPERIDONE
     Indication: MENTAL DISORDER
     Dosage: 12 MG, 1X/DAY
     Route: 048
  5. QUETIAPINE (LUPIN) [Concomitant]
     Dosage: UNK
  6. RISPERIDONE. [Suspect]
     Active Substance: RISPERIDONE
     Indication: MENTAL DISORDER
     Dosage: 12 MG, 1X/DAY
     Route: 048

REACTIONS (4)
  - Hypoaesthesia [Unknown]
  - Illness [Unknown]
  - Reaction to excipient [Unknown]
  - Dysgeusia [Unknown]

NARRATIVE: CASE EVENT DATE: 202003
